FAERS Safety Report 14197019 (Version 1)
Quarter: 2017Q4

REPORT INFORMATION
  Report Type: Spontaneous
  Country: AU (occurrence: AU)
  Receive Date: 20171116
  Receipt Date: 20171116
  Transmission Date: 20180321
  Serious: Yes (Other)
  Sender: FDA-Public Use
  Company Number: AU-MYLANLABS-2017M1072063

PATIENT
  Sex: Female

DRUGS (1)
  1. NOTEN 50 MG TABLETS [Suspect]
     Active Substance: ATENOLOL
     Indication: PRODUCT USED FOR UNKNOWN INDICATION
     Dosage: 25 MG, UNK

REACTIONS (4)
  - Drug ineffective [Unknown]
  - Product storage error [Unknown]
  - Intentional product misuse [Unknown]
  - Supraventricular tachycardia [Recovered/Resolved]
